FAERS Safety Report 19623294 (Version 1)
Quarter: 2021Q3

REPORT INFORMATION
  Report Type: Spontaneous
  Country: NL (occurrence: NL)
  Receive Date: 20210729
  Receipt Date: 20210729
  Transmission Date: 20211014
  Serious: Yes (Hospitalization)
  Sender: FDA-Public Use
  Company Number: NL-AUROBINDO-AUR-APL-2021-031898

PATIENT

DRUGS (4)
  1. FLUOROURACIL. [Suspect]
     Active Substance: FLUOROURACIL
     Indication: COLORECTAL CANCER
     Dosage: UNK (DATE OF LAST DOSE GIVEN 31/MAY/2021)
     Route: 065
     Dates: start: 20210208
  2. OXALIPLATIN. [Suspect]
     Active Substance: OXALIPLATIN
     Indication: COLORECTAL CANCER
     Dosage: UNK ((DATE OF LAST DOSE GIVEN 31/MAY/2021)
     Route: 065
     Dates: start: 20210208
  3. IRINOTECAN [Suspect]
     Active Substance: IRINOTECAN
     Indication: COLORECTAL CANCER
     Dosage: UNK (DATE OF LAST DOSE GIVEN 31/MAY/2021)
     Route: 065
     Dates: start: 20210208
  4. BEVACIZUMAB. [Suspect]
     Active Substance: BEVACIZUMAB
     Indication: COLORECTAL CANCER
     Dosage: UNK ((DATE OF LAST DOSE GIVEN: 31/MAY/2021)
     Route: 065
     Dates: start: 20210208

REACTIONS (1)
  - Chest pain [Recovered/Resolved]

NARRATIVE: CASE EVENT DATE: 20210602
